FAERS Safety Report 14532304 (Version 3)
Quarter: 2020Q3

REPORT INFORMATION
  Report Type: Report from Study
  Country: TH (occurrence: TH)
  Receive Date: 20180214
  Receipt Date: 20200508
  Transmission Date: 20201104
  Serious: Yes (Hospitalization)
  Sender: FDA-Public Use
  Company Number: PHHO2017TH015013

PATIENT
  Age: 61 Year
  Sex: Male
  Weight: 61 kg

DRUGS (108)
  1. COMPARATOR DOCETAXEL [Suspect]
     Active Substance: DOCETAXEL
     Dosage: 48 MG/M2, Q3W
     Route: 042
     Dates: start: 20170928, end: 20170928
  2. SPARTALIZUMAB [Suspect]
     Active Substance: SPARTALIZUMAB
     Indication: NASOPHARYNGEAL CANCER
     Dosage: UNK, NO TREATMENT
     Route: 065
  3. FERROUS FUMARATE [Concomitant]
     Active Substance: FERROUS FUMARATE
     Indication: ANAEMIA
     Dosage: 200 MG, TID
     Route: 048
     Dates: start: 20170613, end: 20170906
  4. OMEPRAZOLE. [Concomitant]
     Active Substance: OMEPRAZOLE
     Dosage: 20 MG, BID
     Route: 048
     Dates: start: 20171026, end: 20171110
  5. ENSURE [Concomitant]
     Active Substance: AMINO ACIDS\DEXTROSE\ELECTROLYTES NOS\SOYBEAN OIL\VITAMINS
     Indication: SUPPLEMENTATION THERAPY
     Dosage: 56.4 G, PRN
     Route: 048
     Dates: start: 20180424
  6. CHLORAM [Concomitant]
     Indication: RADIOTHERAPY
     Dosage: APPLICATION, QID
     Route: 061
     Dates: start: 20180823, end: 20181212
  7. CHLORAM [Concomitant]
     Dosage: APPLICATION, QD
     Route: 061
     Dates: start: 20181212
  8. DEXAMETHASONE. [Concomitant]
     Active Substance: DEXAMETHASONE
     Dosage: 8 MG, BID
     Route: 048
     Dates: start: 20170711, end: 20170714
  9. DEXAMETHASONE. [Concomitant]
     Active Substance: DEXAMETHASONE
     Dosage: 20 MG, ONCE/SINGLE
     Route: 042
     Dates: start: 20180424, end: 20180424
  10. DEXAMETHASONE. [Concomitant]
     Active Substance: DEXAMETHASONE
     Dosage: 20 MG, ONCE/SINGLE
     Route: 042
     Dates: start: 20180515, end: 20180515
  11. PEGFILGRASTIM [Concomitant]
     Active Substance: PEGFILGRASTIM
     Dosage: 6 MG, ONCE/SINGLE
     Route: 058
     Dates: start: 20171019, end: 20171019
  12. PEGFILGRASTIM [Concomitant]
     Active Substance: PEGFILGRASTIM
     Dosage: 6 MG, ONCE/SINGLE
     Route: 058
     Dates: start: 20180111, end: 20180111
  13. ONDANSETRON [Concomitant]
     Active Substance: ONDANSETRON
     Dosage: 8 MG, ONCE/SINGLE
     Route: 042
     Dates: start: 20180403, end: 20180403
  14. ONDANSETRON [Concomitant]
     Active Substance: ONDANSETRON
     Dosage: 8 MG, ONCE/SINGLE
     Route: 042
     Dates: start: 20180424, end: 20180424
  15. ONDANSETRON [Concomitant]
     Active Substance: ONDANSETRON
     Dosage: 8 MG, BID
     Route: 048
     Dates: start: 20180424, end: 20180427
  16. G?CSF [Concomitant]
     Active Substance: GRANULOCYTE COLONY-STIMULATING FACTOR NOS
     Indication: PROPHYLAXIS
     Dosage: 6 MG, ONCE/SINGLE
     Route: 058
     Dates: start: 20170929, end: 20170929
  17. GABAPENTIN. [Concomitant]
     Active Substance: GABAPENTIN
     Dosage: 300 MG, BID
     Route: 048
     Dates: start: 20170728
  18. AUGMENTIN [Concomitant]
     Active Substance: AMOXICILLIN\CLAVULANATE POTASSIUM
     Indication: PROPHYLAXIS
     Dosage: 1 G, BID
     Route: 048
     Dates: start: 20190108, end: 20190114
  19. TRANSAMIN [Concomitant]
     Active Substance: TRANEXAMIC ACID
     Indication: MUCOSAL INFLAMMATION
     Dosage: UNK
     Route: 048
     Dates: start: 20170722, end: 20170723
  20. DEXAMETHASONE. [Concomitant]
     Active Substance: DEXAMETHASONE
     Dosage: 8 MG, BID
     Route: 048
     Dates: start: 20170906, end: 20170909
  21. DEXAMETHASONE. [Concomitant]
     Active Substance: DEXAMETHASONE
     Dosage: 20 MG, ONCE/SINGLE
     Route: 042
     Dates: start: 20171129, end: 20171129
  22. DEXAMETHASONE. [Concomitant]
     Active Substance: DEXAMETHASONE
     Dosage: 8 MG, BID
     Route: 048
     Dates: start: 20171129, end: 20171202
  23. DEXAMETHASONE. [Concomitant]
     Active Substance: DEXAMETHASONE
     Dosage: 8 MG, BID
     Route: 048
     Dates: start: 20180403, end: 20180406
  24. TROLAMINE SALICYLATE. [Concomitant]
     Active Substance: TROLAMINE SALICYLATE
     Indication: PROPHYLAXIS
     Dosage: APPLICATION
     Route: 061
     Dates: start: 20170831
  25. PEGFILGRASTIM [Concomitant]
     Active Substance: PEGFILGRASTIM
     Dosage: 6 MG, ONCE/SINGLE
     Route: 058
     Dates: start: 20180404, end: 20180404
  26. ONDANSETRON [Concomitant]
     Active Substance: ONDANSETRON
     Dosage: 8 MG, ONCE/SINGLE
     Route: 042
     Dates: start: 20170906, end: 20170906
  27. ONDANSETRON [Concomitant]
     Active Substance: ONDANSETRON
     Dosage: 8 MG, ONCE/SINGLE
     Route: 042
     Dates: start: 20171018, end: 20171018
  28. ONDANSETRON [Concomitant]
     Active Substance: ONDANSETRON
     Dosage: 8 MG, BID
     Route: 048
     Dates: start: 20171129, end: 20171202
  29. SPARTALIZUMAB [Suspect]
     Active Substance: SPARTALIZUMAB
     Dosage: 400 MG
     Route: 042
     Dates: start: 20181113, end: 20181113
  30. PARACETAMOL [Concomitant]
     Active Substance: ACETAMINOPHEN
     Indication: PAIN
     Dosage: 1, PRN
     Route: 048
     Dates: start: 20181113
  31. LIDOCAINE VISCOUS [Concomitant]
     Active Substance: LIDOCAINE HYDROCHLORIDE
     Indication: MUCOSAL INFLAMMATION
     Dosage: 5 ML, TID
     Route: 065
     Dates: start: 20170706, end: 20170811
  32. DEXAMETHASONE. [Concomitant]
     Active Substance: DEXAMETHASONE
     Dosage: 20 MG, ONCE/SINGLE
     Route: 042
     Dates: start: 20170906, end: 20170906
  33. ONDANSETRON [Concomitant]
     Active Substance: ONDANSETRON
     Dosage: 8 MG, ONCE/SINGLE
     Route: 042
     Dates: start: 20180131, end: 20180131
  34. COMPARATOR DOCETAXEL [Suspect]
     Active Substance: DOCETAXEL
     Dosage: 48 MG/M2, Q3W
     Route: 042
     Dates: start: 20171129, end: 20171129
  35. COMPARATOR DOCETAXEL [Suspect]
     Active Substance: DOCETAXEL
     Dosage: 48 MG/M2, Q3W
     Route: 042
     Dates: start: 20180110, end: 20180110
  36. SPARTALIZUMAB [Suspect]
     Active Substance: SPARTALIZUMAB
     Dosage: 400 MG
     Route: 042
     Dates: start: 20181017, end: 20181017
  37. SPARTALIZUMAB [Suspect]
     Active Substance: SPARTALIZUMAB
     Dosage: 400 MG
     Route: 042
     Dates: start: 20181211, end: 20181211
  38. MAGNESIUM SULFATE. [Concomitant]
     Active Substance: MAGNESIUM SULFATE
     Indication: PROPHYLAXIS
     Dosage: 4 ML, CONT
     Route: 042
     Dates: start: 20171029, end: 20171029
  39. BLENDERA MF [Concomitant]
     Indication: SUPPLEMENTATION THERAPY
     Dosage: 6, PRN
     Route: 048
     Dates: start: 20170728
  40. LIDOCAINE VISCOUS [Concomitant]
     Active Substance: LIDOCAINE HYDROCHLORIDE
     Dosage: 5 ML, TID
     Route: 048
     Dates: start: 20170823, end: 20170901
  41. DEXAMETHASONE. [Concomitant]
     Active Substance: DEXAMETHASONE
     Dosage: 20 MG, ONCE/SINGLE
     Route: 042
     Dates: start: 20170928, end: 20170928
  42. DEXAMETHASONE. [Concomitant]
     Active Substance: DEXAMETHASONE
     Dosage: 8 MG, BID
     Route: 048
     Dates: start: 20171018, end: 20171021
  43. DEXAMETHASONE. [Concomitant]
     Active Substance: DEXAMETHASONE
     Dosage: 20 MG, ONCE/SINGLE
     Route: 042
     Dates: start: 20171220, end: 20171220
  44. DEXAMETHASONE. [Concomitant]
     Active Substance: DEXAMETHASONE
     Dosage: 8 MG, BID
     Route: 048
     Dates: start: 20180131, end: 20180203
  45. PEGFILGRASTIM [Concomitant]
     Active Substance: PEGFILGRASTIM
     Indication: PROPHYLAXIS
     Dosage: 6 MG, ONCE/SINGLE
     Route: 058
     Dates: start: 20170907, end: 20170907
  46. PEGFILGRASTIM [Concomitant]
     Active Substance: PEGFILGRASTIM
     Dosage: 6 MG, ONCE/SINGLE
     Route: 058
     Dates: start: 20170929, end: 20170929
  47. ONDANSETRON [Concomitant]
     Active Substance: ONDANSETRON
     Dosage: 8 MG, BID
     Route: 048
     Dates: start: 20171018, end: 20171021
  48. ONDANSETRON [Concomitant]
     Active Substance: ONDANSETRON
     Dosage: 8 MG, ONCE/SINGLE
     Route: 042
     Dates: start: 20171129, end: 20171129
  49. ONDANSETRON [Concomitant]
     Active Substance: ONDANSETRON
     Dosage: 8 MG, ONCE/SINGLE
     Route: 042
     Dates: start: 20171220, end: 20171220
  50. ONDANSETRON [Concomitant]
     Active Substance: ONDANSETRON
     Dosage: 8 MG, BID
     Route: 048
     Dates: start: 20171220, end: 20171223
  51. ONDANSETRON [Concomitant]
     Active Substance: ONDANSETRON
     Dosage: 8 MG, ONCE/SINGLE
     Route: 042
     Dates: start: 20180515, end: 20180515
  52. ONDANSETRON [Concomitant]
     Active Substance: ONDANSETRON
     Dosage: 8 MG, BID
     Route: 048
     Dates: start: 20180515, end: 20180518
  53. COMPARATOR DOCETAXEL [Suspect]
     Active Substance: DOCETAXEL
     Dosage: 48 MG/M2, Q3W
     Route: 042
     Dates: start: 20171018, end: 20171018
  54. GABAPENTIN. [Concomitant]
     Active Substance: GABAPENTIN
     Indication: PAIN
     Dosage: 300 MG, BID
     Route: 048
     Dates: start: 20170619, end: 20170719
  55. MAGNESIUM SULFATE. [Concomitant]
     Active Substance: MAGNESIUM SULFATE
     Indication: SUPPLEMENTATION THERAPY
     Dosage: 1, CONT
     Route: 042
     Dates: start: 20170827, end: 20170828
  56. VISIDIC [Concomitant]
     Indication: PROPHYLAXIS
     Dosage: QD
     Route: 061
     Dates: start: 20180125
  57. CHLORHEX [Concomitant]
     Active Substance: CHLORHEXIDINE GLUCONATE
     Indication: MUCOSAL INFLAMMATION
     Dosage: UNK
     Route: 065
     Dates: start: 20170706, end: 20170811
  58. LIDOCAINE VISCOUS [Concomitant]
     Active Substance: LIDOCAINE HYDROCHLORIDE
     Dosage: 5 ML, TID
     Route: 065
     Dates: start: 20180207, end: 20180810
  59. DEXAMETHASONE. [Concomitant]
     Active Substance: DEXAMETHASONE
     Dosage: 8 MG, BID
     Route: 048
     Dates: start: 20170928, end: 20171001
  60. DEXAMETHASONE. [Concomitant]
     Active Substance: DEXAMETHASONE
     Dosage: 20 MG, ONCE/SINGLE
     Route: 042
     Dates: start: 20180110, end: 20180110
  61. DEXAMETHASONE. [Concomitant]
     Active Substance: DEXAMETHASONE
     Dosage: 20 MG, ONCE/SINGLE
     Route: 042
     Dates: start: 20180403, end: 20180403
  62. DEXAMETHASONE. [Concomitant]
     Active Substance: DEXAMETHASONE
     Dosage: 8 MG, BID
     Route: 048
     Dates: start: 20180515, end: 20180518
  63. FUROSEMIDE. [Concomitant]
     Active Substance: FUROSEMIDE
     Indication: PROPHYLAXIS
     Dosage: 20 MG, ONCE/SINGLE
     Route: 042
     Dates: start: 20171019, end: 20171019
  64. PEGFILGRASTIM [Concomitant]
     Active Substance: PEGFILGRASTIM
     Dosage: 6 MG, ONCE/SINGLE
     Route: 058
     Dates: start: 20171221, end: 20171221
  65. PEGFILGRASTIM [Concomitant]
     Active Substance: PEGFILGRASTIM
     Dosage: 6 MG, ONCE/SINGLE
     Route: 058
     Dates: start: 20180425, end: 20180425
  66. PEGFILGRASTIM [Concomitant]
     Active Substance: PEGFILGRASTIM
     Dosage: 6 MG, ONCE/SINGLE
     Route: 058
     Dates: start: 20180516, end: 20180516
  67. ONDANSETRON [Concomitant]
     Active Substance: ONDANSETRON
     Dosage: 8 MG, BID
     Route: 048
     Dates: start: 20170816, end: 20170819
  68. ONDANSETRON [Concomitant]
     Active Substance: ONDANSETRON
     Dosage: 8 MG, ONCE/SINGLE
     Route: 042
     Dates: start: 20170928, end: 20170928
  69. ONDANSETRON [Concomitant]
     Active Substance: ONDANSETRON
     Dosage: 8 MG, BID
     Route: 048
     Dates: start: 20170928, end: 20171001
  70. ONDANSETRON [Concomitant]
     Active Substance: ONDANSETRON
     Dosage: 8 MG, BID
     Route: 048
     Dates: start: 20180110, end: 20180113
  71. COMPARATOR DOCETAXEL [Suspect]
     Active Substance: DOCETAXEL
     Indication: NASOPHARYNGEAL CANCER
     Dosage: 75 MG/M2, Q3W
     Route: 042
     Dates: start: 20170711, end: 20170711
  72. COMPARATOR DOCETAXEL [Suspect]
     Active Substance: DOCETAXEL
     Dosage: 48 MG/M2, Q3W
     Route: 042
     Dates: start: 20171220, end: 20171220
  73. COMPARATOR DOCETAXEL [Suspect]
     Active Substance: DOCETAXEL
     Dosage: 48 MG/M2, Q3W
     Route: 042
     Dates: start: 20180131, end: 20180131
  74. COMPARATOR DOCETAXEL [Suspect]
     Active Substance: DOCETAXEL
     Dosage: 48 MG/M2, Q3W
     Route: 042
     Dates: start: 20180403, end: 20180403
  75. DURATEARS [Concomitant]
     Active Substance: MINERAL OIL EMULSION\PETROLATUM
     Indication: RADIOTHERAPY
     Dosage: APPLICATION, QD
     Route: 061
     Dates: start: 20180823, end: 20181031
  76. DURATEARS [Concomitant]
     Active Substance: MINERAL OIL EMULSION\PETROLATUM
     Dosage: APPLICATION, QID
     Route: 061
     Dates: start: 20181101
  77. SENOKOT [Concomitant]
     Active Substance: SENNOSIDES
     Indication: PROPHYLAXIS
     Dosage: 2, OTHER, QD
     Route: 048
     Dates: start: 20170619, end: 20170717
  78. DEXAMETHASONE. [Concomitant]
     Active Substance: DEXAMETHASONE
     Indication: PRODUCT USED FOR UNKNOWN INDICATION
     Dosage: 20 MG, ONCE/SINGLE
     Route: 042
     Dates: start: 20170711, end: 20170711
  79. ONDANSETRON [Concomitant]
     Active Substance: ONDANSETRON
     Dosage: 8 MG, ONCE/SINGLE
     Route: 042
     Dates: start: 20170816, end: 20170816
  80. ONDANSETRON [Concomitant]
     Active Substance: ONDANSETRON
     Dosage: 8 MG, BID
     Route: 048
     Dates: start: 20180131, end: 20180203
  81. COMPARATOR DOCETAXEL [Suspect]
     Active Substance: DOCETAXEL
     Dosage: 60 MG/M2, Q3W
     Route: 042
     Dates: start: 20170816, end: 20170816
  82. COMPARATOR DOCETAXEL [Suspect]
     Active Substance: DOCETAXEL
     Dosage: 48 MG/M2, Q3W
     Route: 042
     Dates: start: 20180515, end: 20180515
  83. MORPHINE [Concomitant]
     Active Substance: MORPHINE
     Indication: PAIN
     Dosage: 10 MG, PRN
     Route: 048
     Dates: start: 20170619, end: 20170719
  84. OMEPRAZOLE. [Concomitant]
     Active Substance: OMEPRAZOLE
     Indication: PROPHYLAXIS
     Dosage: 40 MG, QD
     Route: 042
     Dates: start: 20171025, end: 20171025
  85. NORMAL SALINE [Concomitant]
     Active Substance: SODIUM CHLORIDE
     Indication: MUCOSAL INFLAMMATION
     Dosage: PRN
     Route: 065
     Dates: start: 20170906
  86. NORMAL SALINE [Concomitant]
     Active Substance: SODIUM CHLORIDE
     Indication: NASOPHARYNGEAL CANCER
  87. DIFFLAM FORTE [Concomitant]
     Indication: MUCOSAL INFLAMMATION
     Dosage: TID
     Route: 065
     Dates: start: 20170706, end: 20170811
  88. DEXAMETHASONE. [Concomitant]
     Active Substance: DEXAMETHASONE
     Dosage: 8 MG, BID
     Route: 048
     Dates: start: 20170816, end: 20170819
  89. DEXAMETHASONE. [Concomitant]
     Active Substance: DEXAMETHASONE
     Dosage: 8 MG, BID
     Route: 048
     Dates: start: 20180110, end: 20180113
  90. DEXAMETHASONE. [Concomitant]
     Active Substance: DEXAMETHASONE
     Dosage: 8 MG, BID
     Route: 048
     Dates: start: 20180424, end: 20180427
  91. PEGFILGRASTIM [Concomitant]
     Active Substance: PEGFILGRASTIM
     Dosage: 6 MG, ONCE/SINGLE
     Route: 058
     Dates: start: 20180201, end: 20180201
  92. SILVER NITRATE. [Concomitant]
     Active Substance: SILVER NITRATE
     Indication: PROPHYLAXIS
     Dosage: BID
     Route: 061
     Dates: start: 20171028, end: 20171129
  93. ONDANSETRON [Concomitant]
     Active Substance: ONDANSETRON
     Dosage: 8 MG, BID
     Route: 048
     Dates: start: 20170711, end: 20170714
  94. ONDANSETRON [Concomitant]
     Active Substance: ONDANSETRON
     Dosage: 8 MG, BID
     Route: 048
     Dates: start: 20170906, end: 20170909
  95. G?CSF [Concomitant]
     Active Substance: GRANULOCYTE COLONY-STIMULATING FACTOR NOS
     Dosage: 6 MG, ONCE/SINGLE
     Route: 058
     Dates: start: 20171019, end: 20171019
  96. COMPARATOR DOCETAXEL [Suspect]
     Active Substance: DOCETAXEL
     Dosage: 60 MG/M2, Q3W
     Route: 042
     Dates: start: 20170906, end: 20170906
  97. COMPARATOR DOCETAXEL [Suspect]
     Active Substance: DOCETAXEL
     Dosage: 48 MG/M2, Q3W
     Route: 042
     Dates: start: 20180424, end: 20180424
  98. MORPHINE [Concomitant]
     Active Substance: MORPHINE
     Dosage: 10 MG, BID
     Route: 048
     Dates: start: 20170619, end: 20170719
  99. MORPHINE [Concomitant]
     Active Substance: MORPHINE
     Dosage: 10 MG/KG, PRN
     Route: 048
     Dates: start: 20170920, end: 20171220
  100. VISIDIC [Concomitant]
     Indication: RADIOTHERAPY
  101. DEXAMETHASONE. [Concomitant]
     Active Substance: DEXAMETHASONE
     Dosage: 20 MG, ONCE/SINGLE
     Route: 042
     Dates: start: 20170816, end: 20170816
  102. DEXAMETHASONE. [Concomitant]
     Active Substance: DEXAMETHASONE
     Dosage: 20 MG, ONCE/SINGLE
     Route: 042
     Dates: start: 20171018, end: 20171018
  103. DEXAMETHASONE. [Concomitant]
     Active Substance: DEXAMETHASONE
     Dosage: 8 MG, BID
     Route: 048
     Dates: start: 20171220, end: 20171223
  104. DEXAMETHASONE. [Concomitant]
     Active Substance: DEXAMETHASONE
     Dosage: 20 MG, ONCE/SINGLE
     Route: 042
     Dates: start: 20180131, end: 20180131
  105. PEGFILGRASTIM [Concomitant]
     Active Substance: PEGFILGRASTIM
     Dosage: 6 MG, ONCE/SINGLE
     Route: 058
     Dates: start: 20171130, end: 20171130
  106. ONDANSETRON [Concomitant]
     Active Substance: ONDANSETRON
     Indication: PRODUCT USED FOR UNKNOWN INDICATION
     Dosage: 8 MG, ONCE/SINGLE
     Route: 042
     Dates: start: 20170711, end: 20170711
  107. ONDANSETRON [Concomitant]
     Active Substance: ONDANSETRON
     Dosage: 8 MG, ONCE/SINGLE
     Route: 042
     Dates: start: 20180110, end: 20180110
  108. ONDANSETRON [Concomitant]
     Active Substance: ONDANSETRON
     Dosage: 8 MG, BID
     Route: 048
     Dates: start: 20180403, end: 20180406

REACTIONS (1)
  - Fatigue [Recovered/Resolved]

NARRATIVE: CASE EVENT DATE: 20171025
